FAERS Safety Report 24307779 (Version 1)
Quarter: 2024Q3

REPORT INFORMATION
  Report Type: Spontaneous
  Country: US (occurrence: None)
  Receive Date: 20240910
  Receipt Date: 20240910
  Transmission Date: 20241016
  Serious: Yes (Other)
  Sender: Public
  Company Number: None

PATIENT
  Age: 71 Year
  Sex: Female
  Weight: 63 kg

DRUGS (1)
  1. DOCETAXEL [Suspect]
     Active Substance: DOCETAXEL\DOCETAXEL ANHYDROUS
     Indication: Breast cancer

REACTIONS (5)
  - Infusion related reaction [None]
  - Feeling hot [None]
  - Flushing [None]
  - Erythema [None]
  - Chest discomfort [None]

NARRATIVE: CASE EVENT DATE: 20240829
